FAERS Safety Report 13127488 (Version 1)
Quarter: 2017Q1

REPORT INFORMATION
  Report Type: Spontaneous
  Country: GB (occurrence: GB)
  Receive Date: 20170118
  Receipt Date: 20170118
  Transmission Date: 20170428
  Serious: Yes (Other)
  Sender: FDA-Public Use
  Company Number: GB-TEIKOKU PHARMA USA-TPU2017-00030

PATIENT
  Age: 86 Year
  Sex: Female
  Weight: 87 kg

DRUGS (15)
  1. CLOPIDOGREL [Concomitant]
     Active Substance: CLOPIDOGREL BISULFATE
  2. FUROSEMIDE. [Concomitant]
     Active Substance: FUROSEMIDE
  3. FLUTICASONE PROPIONATE W/SALMETEROL XINAFOATE [Concomitant]
     Active Substance: FLUTICASONE PROPIONATE\SALMETEROL XINAFOATE
  4. GLICLAZIDE [Concomitant]
     Active Substance: GLICLAZIDE
  5. NYSTAN [Concomitant]
     Active Substance: NYSTATIN
  6. HUMAN INSULATARD [Concomitant]
     Active Substance: INSULIN HUMAN
  7. LITHIUM CARBONATE. [Concomitant]
     Active Substance: LITHIUM CARBONATE
  8. LEVOTHYROXINE SODIUM. [Concomitant]
     Active Substance: LEVOTHYROXINE SODIUM
  9. NIFEDIPINE. [Concomitant]
     Active Substance: NIFEDIPINE
  10. ALENDRONIC ACID [Concomitant]
     Active Substance: ALENDRONIC ACID
  11. SALBUTAMOL [Concomitant]
     Active Substance: ALBUTEROL
  12. ATORVASTATIN [Concomitant]
     Active Substance: ATORVASTATIN
  13. DOCUSATE [Concomitant]
     Active Substance: DOCUSATE
  14. VERSATIS [Suspect]
     Active Substance: LIDOCAINE
     Indication: PAIN
     Route: 061
     Dates: start: 20161111, end: 20161207
  15. BISACODYL. [Concomitant]
     Active Substance: BISACODYL

REACTIONS (3)
  - Bipolar disorder [Recovered/Resolved]
  - Confusional state [Recovered/Resolved]
  - Agitation [Recovered/Resolved]

NARRATIVE: CASE EVENT DATE: 201611
